FAERS Safety Report 20733771 (Version 1)
Quarter: 2022Q2

REPORT INFORMATION
  Report Type: Spontaneous
  Country: RO (occurrence: RO)
  Receive Date: 20220421
  Receipt Date: 20220421
  Transmission Date: 20220721
  Serious: Yes (Death, Other)
  Sender: FDA-Public Use
  Company Number: None

PATIENT
  Age: 66 Year
  Sex: Female
  Weight: 35 kg

DRUGS (1)
  1. NIVOLUMAB [Suspect]
     Active Substance: NIVOLUMAB
     Indication: Tongue neoplasm malignant stage unspecified
     Dosage: 240 MG EVERY 2 WEEKS
     Route: 042
     Dates: start: 20220304, end: 20220304

REACTIONS (2)
  - Autoimmune disorder [Fatal]
  - Glossitis [Fatal]

NARRATIVE: CASE EVENT DATE: 20220307
